FAERS Safety Report 7965854-0 (Version None)
Quarter: 2011Q4

REPORT INFORMATION
  Report Type: 
  Country: None (occurrence: None)
  Receive Date: 20111208
  Receipt Date: 20111202
  Transmission Date: 20120403
  Serious: Yes (Hospitalization)
  Sender: FDA-Public Use
  Company Number: US-GLAXOSMITHKLINE-A0879886A

PATIENT
  Sex: Female

DRUGS (3)
  1. AVANDIA [Suspect]
     Indication: DIABETES MELLITUS
     Dosage: 8MG PER DAY
     Route: 048
     Dates: start: 19990101, end: 20090101
  2. AVANDARYL [Suspect]
     Indication: DIABETES MELLITUS
     Route: 048
     Dates: start: 20000101, end: 20090101
  3. AVANDAMET [Suspect]
     Indication: DIABETES MELLITUS
     Route: 065
     Dates: start: 20030501

REACTIONS (6)
  - CARDIOMEGALY [None]
  - ARTERIOSCLEROSIS [None]
  - CARDIAC DISORDER [None]
  - SWELLING [None]
  - MYOCARDIAL INFARCTION [None]
  - RENAL DISORDER [None]
